FAERS Safety Report 10517386 (Version 1)
Quarter: 2014Q4

REPORT INFORMATION
  Report Type: Spontaneous
  Country: DE (occurrence: DE)
  Receive Date: 20141014
  Receipt Date: 20141014
  Transmission Date: 20150528
  Serious: Yes (Other)
  Sender: FDA-Public Use
  Company Number: GXKR2014DE003808

PATIENT
  Sex: Female

DRUGS (1)
  1. ANASTROZOL ? 1 A PHARMA [Suspect]
     Active Substance: ANASTROZOLE
     Route: 048

REACTIONS (1)
  - Cystitis haemorrhagic [Unknown]
